FAERS Safety Report 5209113-8 (Version None)
Quarter: 2007Q1

REPORT INFORMATION
  Report Type: 
  Country: None (occurrence: None)
  Receive Date: 20070116
  Receipt Date: 20070110
  Transmission Date: 20070707
  Serious: Yes (Disabling)
  Sender: FDA-Public Use
  Company Number: US-AVENTIS-200618403US

PATIENT
  Sex: Female
  Weight: 80.3 kg

DRUGS (6)
  1. LANTUS [Suspect]
     Dates: start: 20050901
  2. AVANDIA [Concomitant]
     Dates: start: 20060101
  3. PLAVIX [Concomitant]
  4. LIPITOR [Concomitant]
  5. TOPROL-XL [Concomitant]
  6. EXCEDRIN P.M.                      /01557001/ [Concomitant]
     Dosage: DOSE: 1 TABLET
     Dates: start: 20010101

REACTIONS (3)
  - BACK DISORDER [None]
  - GAIT DISTURBANCE [None]
  - WEIGHT INCREASED [None]
